FAERS Safety Report 15178479 (Version 4)
Quarter: 2018Q4

REPORT INFORMATION
  Report Type: Spontaneous
  Country: US (occurrence: US)
  Receive Date: 20180722
  Receipt Date: 20181010
  Transmission Date: 20190204
  Serious: No
  Sender: FDA-Public Use
  Company Number: US-ASTRAZENECA-2018SE91497

PATIENT
  Age: 24382 Day
  Sex: Male
  Weight: 128.8 kg

DRUGS (1)
  1. BYDUREON BCISE [Suspect]
     Active Substance: EXENATIDE
     Indication: TYPE 2 DIABETES MELLITUS
     Route: 058
     Dates: start: 20180615

REACTIONS (6)
  - Injection site bruising [Recovered/Resolved]
  - Back disorder [Unknown]
  - Injection site injury [Unknown]
  - Injection site extravasation [Unknown]
  - Underdose [Unknown]
  - Device leakage [Unknown]

NARRATIVE: CASE EVENT DATE: 20180713
